FAERS Safety Report 6716834-4 (Version None)
Quarter: 2010Q2

REPORT INFORMATION
  Report Type: 
  Country: None (occurrence: None)
  Receive Date: 20100510
  Receipt Date: 20100426
  Transmission Date: 20101027
  Serious: No
  Sender: FDA-Public Use
  Company Number: BR-JNJFOC-20100407969

PATIENT
  Sex: Female

DRUGS (3)
  1. DURAGESIC-100 [Suspect]
     Indication: NEOPLASM MALIGNANT
     Route: 062
  2. DURAGESIC-100 [Suspect]
     Indication: BONE PAIN
     Route: 062
  3. DIMORF [Concomitant]
     Dosage: 5 TABLETS PER DAY, EVERY 4 HOURS (7AM, 11AM, 3PM, 7PM AND 11PM)
     Route: 065

REACTIONS (3)
  - DRUG INEFFECTIVE [None]
  - PRODUCT QUALITY ISSUE [None]
  - TREATMENT NONCOMPLIANCE [None]
